FAERS Safety Report 12591220 (Version 1)
Quarter: 2016Q3

REPORT INFORMATION
  Report Type: Spontaneous
  Country: US (occurrence: None)
  Receive Date: 20160725
  Receipt Date: 20160725
  Transmission Date: 20161109
  Serious: Yes (Hospitalization, Other)
  Sender: FDA-Public Use
  Company Number: None

PATIENT
  Age: 19 Year
  Sex: Female
  Weight: 61.24 kg

DRUGS (4)
  1. MULTIVITAMIN GUMMY [Concomitant]
  2. IBUPROFEN. [Concomitant]
     Active Substance: IBUPROFEN
  3. XULANE [Concomitant]
     Active Substance: ETHINYL ESTRADIOL\NORELGESTROMIN
  4. NEXPLANON [Suspect]
     Active Substance: ETONOGESTREL

REACTIONS (8)
  - Loss of libido [None]
  - Insomnia [None]
  - Haemorrhage [None]
  - Depression [None]
  - Nervousness [None]
  - Anxiety [None]
  - Muscle spasms [None]
  - Stress [None]

NARRATIVE: CASE EVENT DATE: 20160716
